FAERS Safety Report 9242117 (Version 1)
Quarter: 2013Q2

REPORT INFORMATION
  Report Type: Report from Study
  Country: CO (occurrence: CO)
  Receive Date: 20130419
  Receipt Date: 20130419
  Transmission Date: 20140414
  Serious: Yes (Death, Hospitalization)
  Sender: FDA-Public Use
  Company Number: CO-SANOFI-AVENTIS-2013SA038515

PATIENT
  Age: 48 Year
  Sex: Male

DRUGS (2)
  1. INSULIN GLULISINE [Suspect]
     Indication: DIABETES MELLITUS
     Dosage: STOP DATE WAS REPORTED AS09/13 WHICH IS A FUTURE DATE THEREFORE CAPTURED AS UNK
     Route: 058
     Dates: start: 201207, end: 20130409
  2. INSULIN HUMAN [Concomitant]
     Indication: DIABETES MELLITUS
     Route: 058
     Dates: end: 20130409

REACTIONS (2)
  - Pulmonary oedema [Fatal]
  - Pneumonia [Unknown]
